FAERS Safety Report 12966508 (Version 1)
Quarter: 2016Q4

REPORT INFORMATION
  Report Type: Spontaneous
  Country: US (occurrence: US)
  Receive Date: 20161121
  Receipt Date: 20161121
  Transmission Date: 20170207
  Serious: Yes (Other)
  Sender: FDA-Public Use
  Company Number: None

PATIENT
  Age: 58 Year
  Sex: Female

DRUGS (1)
  1. LEVOTHYROXINE. [Suspect]
     Active Substance: LEVOTHYROXINE
     Indication: THYROID DISORDER
     Route: 048
     Dates: start: 20160604, end: 20161108

REACTIONS (5)
  - Weight increased [None]
  - Alopecia [None]
  - Product substitution issue [None]
  - Heart rate decreased [None]
  - Blood pressure increased [None]

NARRATIVE: CASE EVENT DATE: 20160823
